FAERS Safety Report 6595884-5 (Version None)
Quarter: 2010Q1

REPORT INFORMATION
  Report Type: 
  Country: None (occurrence: None)
  Receive Date: 20100223
  Receipt Date: 20100210
  Transmission Date: 20100710
  Serious: Yes (Hospitalization, Other)
  Sender: FDA-Public Use
  Company Number: JP-BAYER-200914315BYL

PATIENT
  Age: 66 Year
  Sex: Female
  Weight: 56 kg

DRUGS (25)
  1. NEXAVAR [Suspect]
     Indication: RENAL CELL CARCINOMA
     Dosage: UNIT DOSE: 200 MG
     Route: 048
     Dates: start: 20081113, end: 20081127
  2. NEXAVAR [Suspect]
     Dosage: UNIT DOSE: 200 MG
     Route: 048
     Dates: start: 20081225, end: 20090108
  3. NEXAVAR [Suspect]
     Dosage: UNIT DOSE: 200 MG
     Route: 048
     Dates: start: 20090123, end: 20090225
  4. NEXAVAR [Suspect]
     Dosage: UNIT DOSE: 200 MG
     Route: 048
     Dates: start: 20090410, end: 20090817
  5. NEXAVAR [Suspect]
     Dosage: UNIT DOSE: 200 MG
     Route: 048
     Dates: start: 20090306, end: 20090318
  6. NEXAVAR [Suspect]
     Dosage: UNIT DOSE: 200 MG
     Route: 048
     Dates: start: 20090323, end: 20090325
  7. OXINORM [Concomitant]
     Route: 048
     Dates: start: 20081113
  8. LENDORMIN D [Concomitant]
     Indication: INSOMNIA
     Route: 048
     Dates: start: 20081113
  9. JUVELA [Concomitant]
     Route: 048
     Dates: start: 20081225
  10. JUVELA [Concomitant]
     Route: 048
     Dates: start: 20081113, end: 20081213
  11. CINAL [Concomitant]
     Route: 048
     Dates: start: 20090423
  12. CINAL [Concomitant]
     Route: 048
     Dates: start: 20081225, end: 20090121
  13. CINAL [Concomitant]
     Route: 048
     Dates: start: 20081113, end: 20081221
  14. TAGAMET [Concomitant]
     Route: 048
     Dates: start: 20081127, end: 20081218
  15. TAGAMET [Concomitant]
     Route: 048
     Dates: start: 20090305
  16. OXYCONTIN [Concomitant]
     Route: 048
     Dates: start: 20090205, end: 20090318
  17. OXYCONTIN [Concomitant]
     Route: 048
     Dates: start: 20081225, end: 20090121
  18. OXYCONTIN [Concomitant]
     Route: 048
     Dates: start: 20090410
  19. OXYCONTIN [Concomitant]
     Route: 048
     Dates: start: 20090122, end: 20090204
  20. OXYCONTIN [Concomitant]
     Route: 048
     Dates: start: 20090326, end: 20090409
  21. HUMALOG MIX [Concomitant]
     Route: 058
     Dates: start: 20081219
  22. METHYCOBAL [Concomitant]
     Route: 048
     Dates: start: 20090205
  23. ASPIRIN [Concomitant]
     Indication: THROMBOSIS PROPHYLAXIS
     Dosage: UNIT DOSE: 100 MG
     Route: 048
     Dates: end: 20081126
  24. ASPIRIN [Concomitant]
     Dosage: UNIT DOSE: 100 MG
     Route: 048
     Dates: start: 20090205
  25. HOCHU-EKKI-TO [Concomitant]
     Route: 048
     Dates: start: 20090716

REACTIONS (17)
  - ALOPECIA [None]
  - ARTHRALGIA [None]
  - ASTHENIA [None]
  - COORDINATION ABNORMAL [None]
  - DECREASED APPETITE [None]
  - DYSPHONIA [None]
  - DYSURIA [None]
  - ERYTHEMA [None]
  - MALAISE [None]
  - NASOPHARYNGITIS [None]
  - PAIN [None]
  - PALMAR-PLANTAR ERYTHRODYSAESTHESIA SYNDROME [None]
  - PRURITUS [None]
  - PRURITUS GENERALISED [None]
  - SKIN EXFOLIATION [None]
  - STOMATITIS [None]
  - UPPER RESPIRATORY TRACT INFLAMMATION [None]
